FAERS Safety Report 5924232-6 (Version None)
Quarter: 2008Q4

REPORT INFORMATION
  Report Type: 
  Country: None (occurrence: None)
  Receive Date: 20081020
  Receipt Date: 20081010
  Transmission Date: 20090506
  Serious: Yes (Hospitalization)
  Sender: FDA-Public Use
  Company Number: US-ELI_LILLY_AND_COMPANY-US200801004369

PATIENT
  Sex: Female

DRUGS (9)
  1. FORTEO [Suspect]
     Indication: OSTEOPOROSIS
     Dosage: UNK, UNK
     Dates: start: 20070401, end: 20080101
  2. FORTEO [Suspect]
     Dates: start: 20080101, end: 20080501
  3. HYDROCHLOROTHIAZIDE [Concomitant]
     Indication: HYPERTENSION
     Dosage: 12.5 MG, DAILY (1/D)
  4. AVAPRO [Concomitant]
     Indication: HYPERTENSION
     Dosage: 300 MG, DAILY (1/D)
  5. SYNTHROID [Concomitant]
     Indication: HYPOTHYROIDISM
     Dosage: 50 UG, DAILY (1/D)
  6. LOPRESSOR [Concomitant]
     Indication: HYPERTENSION
     Dosage: 50 MG, 2/D
  7. ASPIRIN [Concomitant]
  8. AVALIDE [Concomitant]
  9. NORVASC [Concomitant]

REACTIONS (4)
  - BRONCHITIS VIRAL [None]
  - INFLUENZA [None]
  - LOBAR PNEUMONIA [None]
  - MALAISE [None]
